FAERS Safety Report 8381304-7 (Version None)
Quarter: 2012Q2

REPORT INFORMATION
  Report Type: 
  Country: None (occurrence: None)
  Receive Date: 20120523
  Receipt Date: 20120424
  Transmission Date: 20120825
  Serious: Yes (Disabling)
  Sender: FDA-Public Use
  Company Number: US-MYLANLABS-2012S1008892

PATIENT
  Age: 46 Year
  Sex: Female

DRUGS (7)
  1. BLEOMYCIN SULFATE [Suspect]
     Indication: HODGKIN'S DISEASE
     Dosage: 10 MG/M2 FOR 6 CYCLES
     Route: 065
  2. ETOPOSIDE [Suspect]
     Indication: HODGKIN'S DISEASE
     Dosage: 300 MG/M2 FOR 6 CYCLES
     Route: 065
  3. VINCRISTINE [Suspect]
     Indication: HODGKIN'S DISEASE
     Dosage: 1.4 MG/M2 FOR 6 CYCLES
     Route: 065
  4. PROCARBAZINE HYDROCHLORIDE [Suspect]
     Indication: HODGKIN'S DISEASE
     Dosage: 700 MG/M2 FOR 6 CYCLES
     Route: 065
  5. PREDNISONE [Suspect]
     Indication: HODGKIN'S DISEASE
     Dosage: 280 MG/M2 FOR 6 CYCLES
     Route: 065
  6. DOXORUBICIN HCL [Suspect]
     Indication: HODGKIN'S DISEASE
     Dosage: 25 MG/M2 FOR 6 CYCLES
     Route: 065
  7. CYTOXAN [Suspect]
     Indication: HODGKIN'S DISEASE
     Dosage: 650 MG/M2 FOR 6 CYCLES
     Route: 065

REACTIONS (1)
  - RESPIRATORY DISORDER [None]
